FAERS Safety Report 13713232 (Version 1)
Quarter: 2017Q3

REPORT INFORMATION
  Report Type: Spontaneous
  Country: US (occurrence: US)
  Receive Date: 20170704
  Receipt Date: 20170704
  Transmission Date: 20171127
  Serious: No
  Sender: FDA-Public Use
  Company Number: US-TEVA-746093ACC

PATIENT
  Sex: Male

DRUGS (1)
  1. PREDNISONE. [Suspect]
     Active Substance: PREDNISONE
     Indication: RASH
     Dates: start: 201702, end: 201702

REACTIONS (6)
  - Insomnia [Recovered/Resolved]
  - Therapy cessation [Unknown]
  - Diarrhoea [Recovered/Resolved]
  - Gastric disorder [Recovered/Resolved]
  - Drug ineffective [Unknown]
  - Anxiety [Recovered/Resolved]
